FAERS Safety Report 13431864 (Version 2)
Quarter: 2017Q3

REPORT INFORMATION
  Report Type: Spontaneous
  Country: US (occurrence: US)
  Receive Date: 20170412
  Receipt Date: 20170707
  Transmission Date: 20171127
  Serious: Yes (Hospitalization)
  Sender: FDA-Public Use
  Company Number: US-JNJFOC-20170308471

PATIENT
  Age: 45 Year
  Sex: Female

DRUGS (2)
  1. XARELTO [Suspect]
     Active Substance: RIVAROXABAN
     Indication: PROPHYLAXIS
     Dosage: 15MG INCREASED TO 20MG
     Route: 048
     Dates: start: 20150102, end: 20150415
  2. XARELTO [Suspect]
     Active Substance: RIVAROXABAN
     Indication: THROMBOSIS PROPHYLAXIS
     Dosage: 15MG INCREASED TO 20MG
     Route: 048
     Dates: start: 20150102, end: 20150415

REACTIONS (1)
  - Anastomotic ulcer haemorrhage [Unknown]

NARRATIVE: CASE EVENT DATE: 20150415
